FAERS Safety Report 25247729 (Version 1)
Quarter: 2025Q2

REPORT INFORMATION
  Report Type: Spontaneous
  Country: DE (occurrence: DE)
  Receive Date: 20250428
  Receipt Date: 20250428
  Transmission Date: 20250717
  Serious: Yes (Other)
  Sender: BOEHRINGER INGELHEIM
  Company Number: DE-BoehringerIngelheim-2025-BI-024055

PATIENT
  Age: 81 Year
  Sex: Female

DRUGS (1)
  1. JARDIANCE [Suspect]
     Active Substance: EMPAGLIFLOZIN
     Indication: Product used for unknown indication

REACTIONS (7)
  - Malignant melanoma [Unknown]
  - Procedural dizziness [Unknown]
  - Anastomotic haemorrhage [Unknown]
  - Blood lactic acid increased [Unknown]
  - Ketonuria [Unknown]
  - Blood pH decreased [Unknown]
  - Post procedural haemorrhage [Unknown]
